FAERS Safety Report 10779039 (Version 1)
Quarter: 2015Q1

REPORT INFORMATION
  Report Type: Spontaneous
  Country: US (occurrence: US)
  Receive Date: 20150210
  Receipt Date: 20150210
  Transmission Date: 20150721
  Serious: No
  Sender: FDA-Public Use
  Company Number: US-B.I. PHARMACEUTICALS,INC./RIDGEFIELD-2015-BI-04742BP

PATIENT
  Age: 78 Year
  Sex: Male
  Weight: 77.11 kg

DRUGS (1)
  1. COMBIVENT [Suspect]
     Active Substance: ALBUTEROL SULFATE\IPRATROPIUM BROMIDE
     Indication: EMPHYSEMA
     Dosage: DOSE PER APPLICATION: 20MCG/100MCG; DAILY DOSE: 60MCG/300MCG
     Route: 055
     Dates: start: 201412

REACTIONS (3)
  - Cough [Not Recovered/Not Resolved]
  - Insomnia [Unknown]
  - Pulmonary congestion [Not Recovered/Not Resolved]

NARRATIVE: CASE EVENT DATE: 201412
